FAERS Safety Report 4881294-5 (Version None)
Quarter: 2005Q4

REPORT INFORMATION
  Report Type: 
  Country: None (occurrence: None)
  Receive Date: 20051212
  Receipt Date: 20051014
  Transmission Date: 20060501
  Serious: No
  Sender: FDA-Public Use
  Company Number: 05P-163-0313868-00

PATIENT
  Age: 70 Year
  Sex: Female
  Weight: 80.7403 kg

DRUGS (4)
  1. TARKA [Suspect]
     Indication: HYPERTENSION
     Dosage: 4MG/240MG, PER ORAL
     Route: 048
     Dates: start: 20051007, end: 20051014
  2. CRONDINE [Concomitant]
  3. UNSPECIFIED MEDICATIONS [Concomitant]
  4. CLOPIDOGREL BISULFATE [Concomitant]

REACTIONS (4)
  - HYPERSENSITIVITY [None]
  - OEDEMA PERIPHERAL [None]
  - RASH GENERALISED [None]
  - SWELLING FACE [None]
